FAERS Safety Report 6998947-5 (Version None)
Quarter: 2010Q3

REPORT INFORMATION
  Report Type: 
  Country: None (occurrence: None)
  Receive Date: 20100920
  Receipt Date: 20090720
  Transmission Date: 20110219
  Serious: Yes (Other)
  Sender: FDA-Public Use
  Company Number: US-ASTRAZENECA-2007UW05044

PATIENT
  Sex: Female

DRUGS (16)
  1. SEROQUEL [Suspect]
     Route: 048
     Dates: start: 20020724
  2. CIMETIDINE [Concomitant]
     Dates: start: 20020516
  3. HALOPERIDOL [Concomitant]
     Dates: start: 20020529
  4. AXID [Concomitant]
     Dosage: 150 MG, 250 MG, 300 MG DISPENSED
     Dates: start: 20020530
  5. PAXIL/PAXIL CR [Concomitant]
     Dosage: 25 MG, 35 MG,40 MG DISPENSED
     Dates: start: 20020530
  6. BENZTROPINE MES [Concomitant]
     Dates: start: 20020603
  7. PREMARIN [Concomitant]
     Dates: start: 20020701
  8. NAPROXEN [Concomitant]
     Dates: start: 20020830
  9. DIOVAN HCT [Concomitant]
     Dosage: 160/12 DISPENSED
     Dates: start: 20020830
  10. FUROSEMIDE [Concomitant]
     Dates: start: 20021230
  11. LEXAPRO [Concomitant]
     Dates: start: 20030117
  12. OMEPRAZOLE [Concomitant]
     Dates: start: 20030117
  13. FLEXTRA-DS [Concomitant]
     Dates: start: 20030117
  14. ATENOLOL [Concomitant]
     Dosage: 25 MG, 50 MG DISPENSED
     Dates: start: 20030120
  15. SONATA [Concomitant]
     Dates: start: 20030301
  16. PROMETHAZINE/CODEI [Concomitant]
     Dates: start: 20030301

REACTIONS (3)
  - DIABETES MELLITUS [None]
  - KETOACIDOSIS [None]
  - PANCREATITIS [None]
